FAERS Safety Report 8762424 (Version 3)
Quarter: 2012Q4

REPORT INFORMATION
  Report Type: 
  Country: US (occurrence: US)
  Receive Date: 20120830
  Receipt Date: 20121108
  Transmission Date: 20130627
  Serious: No
  Sender: FDA-Public Use
  Company Number: US-PFIZER INC-2012210608

PATIENT
  Age: 68 Year
  Sex: Male

DRUGS (3)
  1. LYRICA [Suspect]
     Indication: POST HERPETIC NEURALGIA
     Dosage: 50 mg, 3x/day
     Dates: start: 201206, end: 201208
  2. LYRICA [Suspect]
     Indication: SHINGLES
  3. LORTAB [Concomitant]
     Indication: PAIN
     Dosage: 5/500 q 6 hours as needed not stopped

REACTIONS (6)
  - Withdrawal syndrome [Recovering/Resolving]
  - Hyperhidrosis [Recovering/Resolving]
  - Chills [Recovered/Resolved]
  - Nausea [Recovered/Resolved]
  - Retching [Recovered/Resolved]
  - Mood altered [Unknown]
